FAERS Safety Report 5494760-9 (Version None)
Quarter: 2007Q4

REPORT INFORMATION
  Report Type: 
  Country: None (occurrence: None)
  Receive Date: 20071015
  Receipt Date: 20070821
  Transmission Date: 20080405
  Serious: No
  Sender: FDA-Public Use
  Company Number: 2007SP002921

PATIENT
  Age: 82 Year
  Sex: Male
  Weight: 66.6788 kg

DRUGS (5)
  1. LUNESTA [Suspect]
     Indication: INSOMNIA
     Dosage: 3 MG HS ORAL
     Route: 048
     Dates: start: 20070101
  2. COREG [Concomitant]
  3. POTASSIUM CHLORIDE [Concomitant]
  4. OXYGEN [Concomitant]
  5. DUONEB [Concomitant]

REACTIONS (2)
  - DRUG INEFFECTIVE [None]
  - INITIAL INSOMNIA [None]
